FAERS Safety Report 11589186 (Version 4)
Quarter: 2017Q4

REPORT INFORMATION
  Report Type: Spontaneous
  Country: ES (occurrence: ES)
  Receive Date: 20151002
  Receipt Date: 20171231
  Transmission Date: 20180320
  Serious: Yes (Other)
  Sender: FDA-Public Use
  Company Number: ES-TEVA-597728ISR

PATIENT
  Age: 56 Year
  Sex: Female

DRUGS (5)
  1. TRAMADOL. [Suspect]
     Active Substance: TRAMADOL
     Route: 065
  2. GABAPENTIN. [Suspect]
     Active Substance: GABAPENTIN
     Dosage: 2200 MILLIGRAM DAILY;
     Route: 065
  3. AMITRIPTYLINE [Suspect]
     Active Substance: AMITRIPTYLINE
     Dosage: 10 MG/DAY
  4. DULOXETINE. [Suspect]
     Active Substance: DULOXETINE
     Indication: DEPRESSION
     Dosage: 30 MILLIGRAM DAILY;
  5. GABAPENTIN. [Suspect]
     Active Substance: GABAPENTIN
     Dosage: 1100 MILLIGRAM DAILY;

REACTIONS (4)
  - Psychotic disorder due to a general medical condition [Unknown]
  - Rash pruritic [Recovered/Resolved]
  - Hallucination, visual [Unknown]
  - Hypertension [Unknown]
